FAERS Safety Report 14267321 (Version 1)
Quarter: 2017Q4

REPORT INFORMATION
  Report Type: Spontaneous
  Country: US (occurrence: US)
  Receive Date: 20171208
  Receipt Date: 20171208
  Transmission Date: 20180321
  Serious: Yes (Other)
  Sender: FDA-Public Use
  Company Number: None

PATIENT
  Age: 53 Year
  Sex: Female
  Weight: 93 kg

DRUGS (3)
  1. ROLAPITANT [Suspect]
     Active Substance: ROLAPITANT
     Indication: NAUSEA
     Dosage: ?          OTHER FREQUENCY:ONCE;?
     Route: 041
     Dates: start: 20171204, end: 20171204
  2. DEXAMETHASONE. [Concomitant]
     Active Substance: DEXAMETHASONE
  3. ROLAPITANT [Suspect]
     Active Substance: ROLAPITANT
     Indication: VOMITING
     Dosage: ?          OTHER FREQUENCY:ONCE;?
     Route: 041
     Dates: start: 20171204, end: 20171204

REACTIONS (6)
  - Infusion related reaction [None]
  - Nausea [None]
  - Dysphagia [None]
  - Hyperhidrosis [None]
  - Therapy change [None]
  - Dyspnoea [None]

NARRATIVE: CASE EVENT DATE: 20171204
